FAERS Safety Report 12822242 (Version 1)
Quarter: 2016Q4

REPORT INFORMATION
  Report Type: Other
  Country: US (occurrence: US)
  Receive Date: 20161007
  Receipt Date: 20161007
  Transmission Date: 20170207
  Serious: Yes (Other)
  Sender: FDA-Public Use
  Company Number: US-GAVIS PHARMACEUTICALS, LLC-2016-04511

PATIENT
  Age: 24 Year
  Sex: Male

DRUGS (4)
  1. FLUOCINOLONE ACETONIDE. [Suspect]
     Active Substance: FLUOCINOLONE ACETONIDE
     Indication: AUTOIMMUNE UVEITIS
     Route: 047
  2. BRIMONIDINE [Concomitant]
     Active Substance: BRIMONIDINE TARTRATE
     Indication: AUTOIMMUNE UVEITIS
     Route: 065
  3. LATANOPROST. [Concomitant]
     Active Substance: LATANOPROST
     Indication: AUTOIMMUNE UVEITIS
     Route: 065
  4. DORZOLAMIDE-TIMOLOL [Concomitant]
     Active Substance: DORZOLAMIDE\TIMOLOL
     Indication: AUTOIMMUNE UVEITIS
     Route: 065

REACTIONS (1)
  - Angle closure glaucoma [Recovering/Resolving]
